FAERS Safety Report 7703128-3 (Version None)
Quarter: 2011Q3

REPORT INFORMATION
  Report Type: 
  Country: None (occurrence: None)
  Receive Date: 20110817
  Receipt Date: 20110812
  Transmission Date: 20111222
  Serious: Yes (Death, Life-Threatening, Hospitalization, Disabling)
  Sender: FDA-Public Use
  Company Number: SP03685

PATIENT
  Age: 65 Year
  Sex: Male

DRUGS (1)
  1. XIFAXAN [Suspect]
     Indication: HEPATIC ENCEPHALOPATHY
     Dosage: ORAL
     Route: 048

REACTIONS (10)
  - RENAL FAILURE ACUTE [None]
  - VOMITING [None]
  - ASPIRATION [None]
  - HEPATIC FAILURE [None]
  - HYPOVOLAEMIA [None]
  - MULTI-ORGAN FAILURE [None]
  - RESPIRATORY FAILURE [None]
  - DISCOMFORT [None]
  - FLUID OVERLOAD [None]
  - ASCITES [None]
